FAERS Safety Report 17340828 (Version 1)
Quarter: 2020Q1

REPORT INFORMATION
  Report Type: Spontaneous
  Country: US (occurrence: US)
  Receive Date: 20200129
  Receipt Date: 20200129
  Transmission Date: 20200409
  Serious: No
  Sender: FDA-Public Use
  Company Number: US-ALLERGAN-1913400US

PATIENT

DRUGS (1)
  1. BOTOX [Suspect]
     Active Substance: ONABOTULINUMTOXINA
     Indication: PELVIC FLOOR MUSCLE WEAKNESS
     Dosage: UNK, SINGLE
     Route: 030

REACTIONS (1)
  - Off label use [Unknown]
